FAERS Safety Report 6589515-8 (Version None)
Quarter: 2010Q1

REPORT INFORMATION
  Report Type: 
  Country: None (occurrence: None)
  Receive Date: 20100212
  Receipt Date: 20100127
  Transmission Date: 20100710
  Serious: Yes (Other)
  Sender: FDA-Public Use
  Company Number: 003247

PATIENT
  Sex: Female
  Weight: 59 kg

DRUGS (2)
  1. VIMPAT [Suspect]
     Indication: CONVULSION
     Dosage: (150 MG QD)
     Dates: start: 20090101
  2. DIAZEPAM [Concomitant]

REACTIONS (7)
  - CONDITION AGGRAVATED [None]
  - IMPAIRED HEALING [None]
  - INFECTION [None]
  - INTERSTITIAL LUNG DISEASE [None]
  - ORAL HERPES [None]
  - PNEUMONIA [None]
  - URINARY TRACT INFECTION [None]
